FAERS Safety Report 6971696-5 (Version None)
Quarter: 2010Q3

REPORT INFORMATION
  Report Type: 
  Country: None (occurrence: None)
  Receive Date: 20100908
  Receipt Date: 20100226
  Transmission Date: 20110219
  Serious: No
  Sender: FDA-Public Use
  Company Number: US-PFIZER INC-2010025473

PATIENT
  Sex: Male
  Weight: 93 kg

DRUGS (8)
  1. NARDIL [Suspect]
     Indication: MIGRAINE
     Dosage: 15 MG, 2X/DAY
     Route: 048
  2. BACLOFEN [Concomitant]
     Dosage: 20 MG, 2X/DAY
     Route: 048
  3. SIMVASTATIN [Concomitant]
     Indication: BLOOD CHOLESTEROL
     Dosage: 20 MG, 1X/DAY
     Route: 048
  4. DIVALPROEX SODIUM [Concomitant]
     Indication: HEADACHE
     Dosage: 500 MG, 3X/DAY
     Route: 048
  5. VERAPAMIL HYDROCHLORIDE [Concomitant]
     Indication: BLOOD PRESSURE
     Dosage: 120 MG, 3X/DAY
     Route: 048
  6. SYNTHROID [Concomitant]
     Indication: THYROID DISORDER
     Dosage: 25 UG, 1X/DAY
     Route: 048
  7. NEURONTIN [Concomitant]
     Indication: BACK DISORDER
     Dosage: 600 MG, 3X/DAY
     Route: 048
  8. ACETYLSALICYLIC ACID [Concomitant]
     Dosage: 81 MG, UNK
     Route: 048

REACTIONS (1)
  - ABDOMINAL PAIN UPPER [None]
